FAERS Safety Report 9842171 (Version 2)
Quarter: 2014Q1

REPORT INFORMATION
  Report Type: Spontaneous
  Country: US (occurrence: US)
  Receive Date: 20140124
  Receipt Date: 20140124
  Transmission Date: 20141002
  Serious: Yes (Hospitalization)
  Sender: FDA-Public Use
  Company Number: US-B.I. PHARMACEUTICALS,INC./RIDGEFIELD-2013-BI-24027BP

PATIENT
  Age: 78 Year
  Sex: Female
  Weight: 86.18 kg

DRUGS (9)
  1. PRADAXA [Suspect]
     Indication: ATRIAL FIBRILLATION
     Dates: start: 20130130, end: 20130503
  2. NORVASC [Concomitant]
  3. LASIX [Concomitant]
  4. ASPIRIN [Concomitant]
  5. LORATIDINE [Concomitant]
  6. METOPROLOL [Concomitant]
  7. RANEXA [Concomitant]
  8. STATIN [Concomitant]
  9. NORCO [Concomitant]

REACTIONS (1)
  - Gastrointestinal haemorrhage [Unknown]
